FAERS Safety Report 23097673 (Version 1)
Quarter: 2023Q4

REPORT INFORMATION
  Report Type: Spontaneous
  Country: None (occurrence: US)
  Receive Date: 20231023
  Receipt Date: 20231023
  Transmission Date: 20240110
  Serious: No
  Sender: FDA-Public Use
  Company Number: US-Ascend Therapeutics US, LLC-2147377

PATIENT
  Age: 30 Year
  Sex: Male

DRUGS (2)
  1. ANDROGEL [Suspect]
     Active Substance: TESTOSTERONE
     Indication: Product used for unknown indication
     Route: 062
  2. ANDROGEL [Suspect]
     Active Substance: TESTOSTERONE
     Route: 062

REACTIONS (1)
  - Hair growth abnormal [Not Recovered/Not Resolved]
